FAERS Safety Report 9684822 (Version 2)
Quarter: 2014Q1

REPORT INFORMATION
  Report Type: Report from Study
  Country: NL (occurrence: NL)
  Receive Date: 20131112
  Receipt Date: 20140213
  Transmission Date: 20141002
  Serious: Yes (Death)
  Sender: FDA-Public Use
  Company Number: PHHY2013NL128860

PATIENT
  Sex: Female

DRUGS (8)
  1. ACLASTA [Suspect]
     Indication: OSTEOPOROSIS
     Dosage: 5 MG, ONCE EVERY 52 WEEKS
     Route: 042
     Dates: start: 201210
  2. PANTOZOL [Concomitant]
     Dosage: UNK
  3. ACENOCOUMAROL [Concomitant]
     Dosage: UNK
  4. FUROSEMIDE [Concomitant]
     Dosage: UNK
  5. ALDACTONE [Concomitant]
     Dosage: UNK
  6. PROMOCARD [Concomitant]
     Dosage: UNK
  7. SOTALOL [Concomitant]
     Dosage: UKN
  8. PARACETAMOL [Concomitant]
     Dosage: UNK

REACTIONS (1)
  - Death [Fatal]
